FAERS Safety Report 12406793 (Version 1)
Quarter: 2016Q2

REPORT INFORMATION
  Report Type: Spontaneous
  Country: US (occurrence: US)
  Receive Date: 20160526
  Receipt Date: 20160526
  Transmission Date: 20160815
  Serious: No
  Sender: FDA-Public Use
  Company Number: US-BAYER-2016-100564

PATIENT
  Age: 1 Year
  Sex: Male

DRUGS (1)
  1. CHILDREN CLARITIN ALLERGY [Suspect]
     Active Substance: LORATADINE
     Indication: ARTHROPOD BITE
     Dosage: 5 MG, QD
     Route: 048
     Dates: start: 20160523

REACTIONS (2)
  - Incorrect dose administered [None]
  - Off label use [None]

NARRATIVE: CASE EVENT DATE: 20160523
